FAERS Safety Report 17371208 (Version 1)
Quarter: 2020Q1

REPORT INFORMATION
  Report Type: Report from Study
  Country: None (occurrence: US)
  Receive Date: 20200205
  Receipt Date: 20200205
  Transmission Date: 20200409
  Serious: Yes (Hospitalization, Other)
  Sender: FDA-Public Use
  Company Number: US-ABBVIE-20K-163-3258438-00

PATIENT
  Age: 79 Year
  Sex: Male

DRUGS (2)
  1. CREON [Suspect]
     Active Substance: PANCRELIPASE AMYLASE\PANCRELIPASE LIPASE\PANCRELIPASE PROTEASE
     Indication: PANCREATIC CARCINOMA
     Dosage: 2 CAPSULES PER MEAL
     Route: 048
     Dates: start: 201811
  2. ZINC. [Concomitant]
     Active Substance: ZINC
     Indication: ROUTINE HEALTH MAINTENANCE

REACTIONS (5)
  - Back pain [Recovering/Resolving]
  - Arthritis [Recovering/Resolving]
  - Diabetes mellitus [Not Recovered/Not Resolved]
  - Pain [Recovering/Resolving]
  - Nausea [Recovering/Resolving]

NARRATIVE: CASE EVENT DATE: 201910
